FAERS Safety Report 8589463-8 (Version None)
Quarter: 2012Q3

REPORT INFORMATION
  Report Type: 
  Country: None (occurrence: None)
  Receive Date: 20120813
  Receipt Date: 20120809
  Transmission Date: 20120928
  Serious: Yes (Life-Threatening)
  Sender: FDA-Public Use
  Company Number: IT-ASTRAZENECA-2012SE56388

PATIENT
  Age: 46 Year
  Sex: Male

DRUGS (5)
  1. TENORMIN [Suspect]
     Dosage: 23 TABLETS 2300 MG
     Route: 048
     Dates: start: 20120808, end: 20120808
  2. VALPROATE SODIUM [Concomitant]
  3. DAPAROX [Concomitant]
     Dosage: 20 MG FILM-COATED TABLETS
  4. HALDOL [Concomitant]
     Route: 048
  5. SEROQUEL [Concomitant]

REACTIONS (1)
  - INTENTIONAL OVERDOSE [None]
